FAERS Safety Report 8328034-5 (Version None)
Quarter: 2012Q2

REPORT INFORMATION
  Report Type: 
  Country: None (occurrence: None)
  Receive Date: 20120430
  Receipt Date: 20120416
  Transmission Date: 20120825
  Serious: Yes (Hospitalization, Other)
  Sender: FDA-Public Use
  Company Number: EU-2012-10094

PATIENT

DRUGS (3)
  1. SAMSCA [Suspect]
     Indication: OFF LABEL USE
     Dosage: 7.5 MG MILLIGRAM(S), BID, ORAL ; 30 MG MILLIGRAM(S), BID, ORAL
     Route: 048
     Dates: start: 20120301
  2. SAMSCA [Suspect]
     Indication: HYPONATRAEMIA
     Dosage: 7.5 MG MILLIGRAM(S), BID, ORAL ; 30 MG MILLIGRAM(S), BID, ORAL
     Route: 048
     Dates: start: 20120301
  3. SAMSCA [Suspect]
     Indication: CARDIAC FAILURE
     Dosage: 7.5 MG MILLIGRAM(S), BID, ORAL ; 30 MG MILLIGRAM(S), BID, ORAL
     Route: 048
     Dates: start: 20120301

REACTIONS (8)
  - WRONG TECHNIQUE IN DRUG USAGE PROCESS [None]
  - CARDIAC FAILURE [None]
  - ENDOCARDITIS [None]
  - DEVICE RELATED INFECTION [None]
  - OFF LABEL USE [None]
  - DEPRESSED LEVEL OF CONSCIOUSNESS [None]
  - CONDITION AGGRAVATED [None]
  - HYPONATRAEMIA [None]
